FAERS Safety Report 5402542-9 (Version None)
Quarter: 2007Q3

REPORT INFORMATION
  Report Type: 
  Country: None (occurrence: None)
  Receive Date: 20070801
  Receipt Date: 20061102
  Transmission Date: 20080115
  Serious: No
  Sender: FDA-Public Use
  Company Number: A0626203A

PATIENT

DRUGS (1)
  1. IMITREX [Suspect]

REACTIONS (1)
  - WRONG TECHNIQUE IN DRUG USAGE PROCESS [None]
